FAERS Safety Report 8042542-6 (Version None)
Quarter: 2012Q1

REPORT INFORMATION
  Report Type: 
  Country: None (occurrence: None)
  Receive Date: 20120112
  Receipt Date: 20120104
  Transmission Date: 20120608
  Serious: Yes (Other)
  Sender: FDA-Public Use
  Company Number: US-PFIZER INC-2012002655

PATIENT
  Age: 62 Year
  Sex: Female
  Weight: 63.5 kg

DRUGS (3)
  1. CHANTIX [Suspect]
     Indication: SMOKING CESSATION THERAPY
     Dosage: UNK
     Route: 048
  2. LEVOXYL [Concomitant]
     Indication: HORMONE REPLACEMENT THERAPY
     Dosage: 100 UG, DAILY
  3. CHANTIX [Suspect]
     Dosage: 0.5 MG, DAILY
     Route: 048
     Dates: start: 20111231

REACTIONS (4)
  - NAUSEA [None]
  - ERUCTATION [None]
  - THROAT IRRITATION [None]
  - DYSPEPSIA [None]
